FAERS Safety Report 11414258 (Version 1)
Quarter: 2015Q3

REPORT INFORMATION
  Report Type: Spontaneous
  Country: BR (occurrence: BR)
  Receive Date: 20150824
  Receipt Date: 20150824
  Transmission Date: 20151125
  Serious: Yes (Other)
  Sender: FDA-Public Use
  Company Number: PHHY2015BR099759

PATIENT
  Age: 4 Month
  Sex: Female

DRUGS (2)
  1. PREDNISONE. [Suspect]
     Active Substance: PREDNISONE
     Indication: THROMBOCYTOPENIA
  2. PREDNISONE. [Suspect]
     Active Substance: PREDNISONE
     Indication: HAEMANGIOMA
     Dosage: 4 MG/KG, QD
     Route: 065

REACTIONS (3)
  - Respiratory tract infection [Unknown]
  - Condition aggravated [Recovering/Resolving]
  - Drug ineffective [Unknown]
